FAERS Safety Report 4608534-1 (Version None)
Quarter: 2005Q1

REPORT INFORMATION
  Report Type: 
  Country: None (occurrence: None)
  Receive Date: 20050311
  Receipt Date: 20050311
  Transmission Date: 20050727
  Serious: Yes (Life-Threatening, Hospitalization)
  Sender: FDA-Public Use
  Company Number: None

PATIENT
  Sex: Male

DRUGS (1)
  1. MYLOTARG [Suspect]
     Indication: LEUKAEMIA
     Dosage: 4MG  INTRAVENOUS
     Route: 042
     Dates: start: 20040620, end: 20040620

REACTIONS (4)
  - BLOOD BILIRUBIN INCREASED [None]
  - BLOOD CREATININE INCREASED [None]
  - BLOOD PHOSPHORUS INCREASED [None]
  - WEIGHT INCREASED [None]
